FAERS Safety Report 16195258 (Version 6)
Quarter: 2019Q3

REPORT INFORMATION
  Report Type: Spontaneous
  Country: US (occurrence: US)
  Receive Date: 20190415
  Receipt Date: 20190909
  Transmission Date: 20191004
  Serious: Yes (Hospitalization)
  Sender: FDA-Public Use
  Company Number: US-TAKEDA-2019TUS020882

PATIENT
  Sex: Female
  Weight: 54.42 kg

DRUGS (1)
  1. NINLARO [Suspect]
     Active Substance: IXAZOMIB CITRATE
     Indication: PLASMA CELL MYELOMA
     Dosage: 3 MILLIGRAM, UNK
     Route: 048
     Dates: start: 20120821

REACTIONS (13)
  - Fall [Unknown]
  - Paraesthesia [Unknown]
  - Decreased appetite [Unknown]
  - Gait disturbance [Unknown]
  - Malaise [Unknown]
  - Injury [Unknown]
  - Gait inability [Unknown]
  - Balance disorder [Unknown]
  - Vertigo [Unknown]
  - Product dose omission [Unknown]
  - Cyst [Unknown]
  - Neuropathy peripheral [Unknown]
  - Full blood count decreased [Unknown]
